FAERS Safety Report 8965566 (Version 1)
Quarter: 2012Q4

REPORT INFORMATION
  Report Type: Spontaneous
  Country: US (occurrence: None)
  Receive Date: 20121012
  Receipt Date: 20121012
  Transmission Date: 20130627
  Serious: No
  Sender: FDA-Public Use
  Company Number: None

PATIENT

DRUGS (1)
  1. SUPRANE [Suspect]
     Indication: ANAESTHESIA PROCEDURE
     Dates: start: 20121008

REACTIONS (1)
  - Device malfunction [None]
